FAERS Safety Report 15697133 (Version 3)
Quarter: 2019Q1

REPORT INFORMATION
  Report Type: Spontaneous
  Country: US (occurrence: US)
  Receive Date: 20181206
  Receipt Date: 20190225
  Transmission Date: 20190417
  Serious: No
  Sender: FDA-Public Use
  Company Number: US-PFIZER INC-2018497242

PATIENT
  Age: 56 Year
  Sex: Female
  Weight: 99.79 kg

DRUGS (2)
  1. NICOTROL [Suspect]
     Active Substance: NICOTINE
     Indication: SMOKING CESSATION THERAPY
     Dosage: UNK
  2. NICOTROL [Suspect]
     Active Substance: NICOTINE
     Dosage: UNK [80 SPRAYS PER DAY] [2 SPRAYS, ONE IN EACH NOSTRIL]
     Route: 045

REACTIONS (1)
  - Drug effect incomplete [Unknown]
